FAERS Safety Report 8954157 (Version 1)
Quarter: 2012Q4

REPORT INFORMATION
  Report Type: 
  Country: IL (occurrence: IL)
  Receive Date: 20121207
  Receipt Date: 20121207
  Transmission Date: 20130627
  Serious: Yes (Other)
  Sender: FDA-Public Use
  Company Number: IL-JNJFOC-20050406726

PATIENT
  Age: 27 Year
  Sex: Male

DRUGS (3)
  1. IBUPROFEN [Suspect]
     Route: 048
  2. IBUPROFEN [Suspect]
     Indication: BACK PAIN
     Route: 048
  3. RISPERIDONE [Concomitant]

REACTIONS (2)
  - Psychotic disorder [Recovered/Resolved]
  - Condition aggravated [Recovered/Resolved]
